FAERS Safety Report 10540093 (Version 1)
Quarter: 2014Q4

REPORT INFORMATION
  Report Type: Report from Study
  Country: US (occurrence: US)
  Receive Date: 20141024
  Receipt Date: 20141024
  Transmission Date: 20150529
  Serious: Yes (Other)
  Sender: FDA-Public Use
  Company Number: US-TEVA-516526USA

PATIENT
  Age: 0 Day
  Sex: Female
  Weight: 3.12 kg

DRUGS (3)
  1. COPAXONE [Suspect]
     Active Substance: GLATIRAMER ACETATE
     Indication: MULTIPLE SCLEROSIS
     Route: 064
  2. PRENATAL VITAMINS [Concomitant]
     Active Substance: VITAMINS
     Route: 064
     Dates: start: 20140115
  3. VITAMIN D [Concomitant]
     Active Substance: CHOLECALCIFEROL
     Route: 064
     Dates: start: 20121201

REACTIONS (2)
  - Respiratory disorder neonatal [Unknown]
  - Foetal exposure during pregnancy [Unknown]

NARRATIVE: CASE EVENT DATE: 20140923
